FAERS Safety Report 4283505-6 (Version None)
Quarter: 2004Q1

REPORT INFORMATION
  Report Type: 
  Country: None (occurrence: None)
  Receive Date: 20040120
  Receipt Date: 20030325
  Transmission Date: 20041129
  Serious: Yes (Hospitalization)
  Sender: FDA-Public Use
  Company Number: NSADSS2003015578

PATIENT
  Age: 39 Year
  Sex: Female
  Weight: 92.0802 kg

DRUGS (1)
  1. COPPER T MODEL TCU 380A [Suspect]
     Indication: INTRA-UTERINE CONTRACEPTIVE DEVICE INSERTION
     Dosage: INTRAUTERINE
     Route: 015
     Dates: start: 19991130, end: 20030325

REACTIONS (3)
  - ABDOMINAL PAIN [None]
  - IUCD COMPLICATION [None]
  - VAGINAL MYCOSIS [None]
